FAERS Safety Report 6715425-9 (Version None)
Quarter: 2010Q2

REPORT INFORMATION
  Report Type: 
  Country: None (occurrence: None)
  Receive Date: 20100507
  Receipt Date: 20100428
  Transmission Date: 20101027
  Serious: Yes (Hospitalization)
  Sender: FDA-Public Use
  Company Number: CH-JNJFOC-20100407183

PATIENT
  Age: 79 Year
  Sex: Male
  Weight: 81 kg

DRUGS (12)
  1. RISPERDAL [Suspect]
     Indication: DRUG USE FOR UNKNOWN INDICATION
     Route: 048
  2. AMIODARONE [Interacting]
     Indication: ATRIAL FLUTTER
     Route: 048
  3. AMIODARONE [Interacting]
     Indication: ATRIAL FIBRILLATION
     Route: 048
  4. ATORVASTATIN CALCIUM [Interacting]
     Indication: HYPERCHOLESTEROLAEMIA
     Route: 048
  5. AMLODIPINE [Interacting]
     Indication: ESSENTIAL HYPERTENSION
     Route: 048
  6. TORSEMIDE [Concomitant]
     Route: 048
  7. DIOVAN HCT [Concomitant]
     Route: 048
  8. CITALOPRAM HYDROBROMIDE [Concomitant]
     Route: 048
  9. HUMALOG [Concomitant]
     Route: 058
  10. ANXIOLIT [Concomitant]
     Route: 048
  11. NEURONTIN [Concomitant]
     Route: 048
  12. DICLOFENAC EPOLAMINUM [Concomitant]
     Indication: PAIN
     Route: 061

REACTIONS (4)
  - DRUG INTERACTION [None]
  - PNEUMONIA ASPIRATION [None]
  - RENAL FAILURE ACUTE [None]
  - RHABDOMYOLYSIS [None]
